FAERS Safety Report 8112417-2 (Version None)
Quarter: 2012Q1

REPORT INFORMATION
  Report Type: 
  Country: None (occurrence: None)
  Receive Date: 20120203
  Receipt Date: 20120130
  Transmission Date: 20120608
  Serious: Yes (Other)
  Sender: FDA-Public Use
  Company Number: US-AMGEN-USASP2012006005

PATIENT
  Age: 61 Year
  Sex: Female

DRUGS (4)
  1. CALCIUM [Concomitant]
  2. VITAMIN D [Concomitant]
  3. PROLIA [Suspect]
     Indication: OSTEOPOROSIS POSTMENOPAUSAL
     Dosage: 60 MG, Q6MO
  4. COUMADIN [Concomitant]

REACTIONS (1)
  - CALCIPHYLAXIS [None]
